FAERS Safety Report 6160354-5 (Version None)
Quarter: 2009Q2

REPORT INFORMATION
  Report Type: 
  Country: None (occurrence: None)
  Receive Date: 20090415
  Receipt Date: 20090415
  Transmission Date: 20091009
  Serious: Yes (Other)
  Sender: FDA-Public Use
  Company Number: None

PATIENT
  Age: 45 Year
  Sex: Male
  Weight: 98.8842 kg

DRUGS (1)
  1. PIROXICAM [Suspect]
     Indication: NECK PAIN
     Dosage: 1 CAP PER DAY
     Dates: start: 20090401, end: 20090403

REACTIONS (2)
  - AMNESIA [None]
  - DISORIENTATION [None]
